FAERS Safety Report 8931256 (Version 4)
Quarter: 2012Q4

REPORT INFORMATION
  Report Type: 
  Country: JP (occurrence: JP)
  Receive Date: 20121128
  Receipt Date: 20121227
  Transmission Date: 20130627
  Serious: Yes (Other)
  Sender: FDA-Public Use
  Company Number: JP-VERTEX PHARMACEUTICAL INC.-2012-025083

PATIENT
  Age: 72 Year
  Sex: Female

DRUGS (10)
  1. TELAVIC [Suspect]
     Indication: CHRONIC HEPATITIS C
     Dosage: 1500 mg, qd
     Route: 048
     Dates: start: 20121102
  2. REBETOL [Suspect]
     Indication: CHRONIC HEPATITIS C
     Dosage: 600 mg, qd
     Route: 048
     Dates: start: 20121102
  3. PEGINTERFERON ALFA-2B [Suspect]
     Indication: CHRONIC HEPATITIS C
     Dosage: 1.5 ?g/kg, qw
     Route: 058
     Dates: start: 20121102, end: 20121109
  4. PEGINTERFERON ALFA-2B [Suspect]
     Dosage: 1 ?g/kg, qw
     Route: 058
     Dates: start: 20121116
  5. URSO                               /00465701/ [Concomitant]
     Dosage: 600 mg, qd
     Route: 048
  6. BLOPRESS [Concomitant]
     Dosage: 8 mg, qd
     Route: 048
  7. THYROID POWDER [Concomitant]
     Dosage: 10 mg, qd
     Route: 048
  8. ZETIA [Concomitant]
     Dosage: 10 mg, qd
     Route: 048
  9. BENET [Concomitant]
     Dosage: 17.5 mg, qd
     Route: 048
  10. FEBURIC [Concomitant]
     Dosage: 10 mg, qd
     Route: 048
     Dates: start: 20121102

REACTIONS (1)
  - White blood cell count decreased [Recovered/Resolved]
